FAERS Safety Report 4590392-5 (Version None)
Quarter: 2005Q1

REPORT INFORMATION
  Report Type: 
  Country: None (occurrence: None)
  Receive Date: 20050224
  Receipt Date: 20050124
  Transmission Date: 20050727
  Serious: Yes (Death, Hospitalization)
  Sender: FDA-Public Use
  Company Number: US-MERCK-0501USA03585

PATIENT
  Age: 89 Year
  Sex: Female
  Weight: 50 kg

DRUGS (6)
  1. VIOXX [Suspect]
     Route: 048
     Dates: end: 20030806
  2. PLAVIX [Concomitant]
     Route: 065
  3. COLCHICINE [Concomitant]
     Route: 065
  4. XALATAN [Concomitant]
     Route: 065
  5. ALPHAGAN [Concomitant]
     Route: 065
  6. BETOPTIC [Concomitant]
     Route: 065

REACTIONS (19)
  - ABDOMINAL PAIN [None]
  - ASTHENIA [None]
  - BACK PAIN [None]
  - CONSTIPATION [None]
  - DEATH [None]
  - DECREASED APPETITE [None]
  - DECUBITUS ULCER [None]
  - DEPRESSION [None]
  - MALIGNANT HYPERTENSION [None]
  - MALNUTRITION [None]
  - METABOLIC ACIDOSIS [None]
  - MUSCLE ATROPHY [None]
  - MYALGIA [None]
  - OSTEOPOROSIS [None]
  - PNEUMONIA [None]
  - PNEUMONITIS [None]
  - PULMONARY MASS [None]
  - RENAL FAILURE [None]
  - RENAL FAILURE CHRONIC [None]
